FAERS Safety Report 21221409 (Version 4)
Quarter: 2022Q3

REPORT INFORMATION
  Report Type: Spontaneous
  Country: US (occurrence: US)
  Receive Date: 20220817
  Receipt Date: 20220908
  Transmission Date: 20221026
  Serious: Yes (Death, Hospitalization, Other)
  Sender: FDA-Public Use
  Company Number: US-CORCEPT THERAPEUTICS INC.-US-2022CRT001218

PATIENT

DRUGS (1)
  1. KORLYM [Suspect]
     Active Substance: MIFEPRISTONE
     Indication: Cushing^s syndrome
     Dosage: UNK
     Route: 048
     Dates: end: 2022

REACTIONS (5)
  - Death [Fatal]
  - Pneumonia [Unknown]
  - Infection [Unknown]
  - Oesophageal-pulmonary fistula [Unknown]
  - Pyrexia [Unknown]

NARRATIVE: CASE EVENT DATE: 20220801
